FAERS Safety Report 20849257 (Version 2)
Quarter: 2022Q2

REPORT INFORMATION
  Report Type: Spontaneous
  Country: US (occurrence: US)
  Receive Date: 20220519
  Receipt Date: 20220601
  Transmission Date: 20220721
  Serious: Yes (Hospitalization)
  Sender: FDA-Public Use
  Company Number: US-TEVA-2022-US-2037125

PATIENT
  Age: 66 Year
  Sex: Male

DRUGS (9)
  1. WARFARIN [Suspect]
     Active Substance: WARFARIN
     Indication: Anticoagulant therapy
     Route: 065
  2. WARFARIN [Suspect]
     Active Substance: WARFARIN
     Indication: Raynaud^s phenomenon
  3. BEVACIZUMAB [Suspect]
     Active Substance: BEVACIZUMAB
     Indication: Gastrointestinal vascular malformation haemorrhagic
     Dosage: 5 MG/KG ONCE 2 WEEKS
     Route: 065
  4. BEVACIZUMAB [Suspect]
     Active Substance: BEVACIZUMAB
     Indication: Anaemia
     Dosage: 5 MG/KG ONCE A MONTH
     Route: 065
  5. MEPOLIZUMAB [Concomitant]
     Active Substance: MEPOLIZUMAB
     Indication: Eosinophilic granulomatosis with polyangiitis
     Route: 065
  6. ASPIRIN [Concomitant]
     Active Substance: ASPIRIN
     Indication: Antiplatelet therapy
     Route: 065
  7. ASPIRIN [Concomitant]
     Active Substance: ASPIRIN
     Indication: Raynaud^s phenomenon
  8. RITUXIMAB [Concomitant]
     Active Substance: RITUXIMAB
     Indication: Raynaud^s phenomenon
     Route: 065
  9. IRON SUCROSE [Concomitant]
     Active Substance: IRON SUCROSE
     Indication: Anaemia
     Dosage: 300 MG
     Route: 041

REACTIONS (5)
  - Paradoxical drug reaction [Recovered/Resolved]
  - Vascular endothelial growth factor assay [Recovered/Resolved]
  - Laboratory test abnormal [Recovered/Resolved]
  - Gastrointestinal vascular malformation haemorrhagic [Recovered/Resolved]
  - Anaemia [Recovered/Resolved]
